FAERS Safety Report 24585544 (Version 3)
Quarter: 2025Q3

REPORT INFORMATION
  Report Type: Report from Study
  Country: US (occurrence: US)
  Receive Date: 20241106
  Receipt Date: 20250821
  Transmission Date: 20251020
  Serious: No
  Sender: SUNOVION
  Company Number: US-SUMITOMO PHARMA SWITZERLAND GMBH-2024SPA004383

PATIENT
  Age: 73 Year
  Sex: Male

DRUGS (1)
  1. ORGOVYX [Suspect]
     Active Substance: RELUGOLIX
     Indication: Prostate cancer
     Dosage: 120 MG, QD
     Route: 048
     Dates: start: 20231012

REACTIONS (6)
  - Dyspepsia [Unknown]
  - Heart rate irregular [Unknown]
  - Incorrect dose administered [Recovered/Resolved]
  - Cardiac monitoring [Unknown]
  - Dizziness postural [Unknown]
  - Fear of falling [Unknown]
